FAERS Safety Report 6369886-8 (Version None)
Quarter: 2009Q3

REPORT INFORMATION
  Report Type: 
  Country: None (occurrence: None)
  Receive Date: 20090923
  Receipt Date: 20070611
  Transmission Date: 20100115
  Serious: Yes (Other)
  Sender: FDA-Public Use
  Company Number: US-ASTRAZENECA-2006UW11868

PATIENT
  Age: 16557 Day
  Sex: Female
  Weight: 69.4 kg

DRUGS (15)
  1. SEROQUEL [Suspect]
     Indication: SLEEP DISORDER
     Route: 048
     Dates: start: 20041101, end: 20060101
  2. SEROQUEL [Suspect]
     Indication: AGITATION
     Route: 048
     Dates: start: 20041101, end: 20060101
  3. SEROQUEL [Suspect]
     Dosage: 100 MG TO 200 MG
     Route: 048
     Dates: start: 20041101
  4. SEROQUEL [Suspect]
     Dosage: 100 MG TO 200 MG
     Route: 048
     Dates: start: 20041101
  5. PREMPRO [Concomitant]
     Dosage: 0.45/1.5 MG DAILY
     Dates: start: 20071207
  6. CRESTOR [Concomitant]
     Dates: start: 20050106
  7. DICYCLOMINE [Concomitant]
     Indication: IRRITABLE BOWEL SYNDROME
     Dates: start: 20050309
  8. FUROSEMIDE [Concomitant]
     Dates: start: 20050711
  9. HYDROCODONE BITARTRATE AND ACETAMINOPHEN [Concomitant]
     Dosage: 5/500
     Dates: start: 20051018
  10. GLIPIZIDE [Concomitant]
     Dates: start: 20051102
  11. JANUVIA [Concomitant]
     Dates: start: 20070326
  12. AVANDAMET [Concomitant]
     Dosage: 2 MG/1000 MG
     Dates: start: 20070326
  13. BELLAMINE-S [Concomitant]
     Dates: start: 20070326
  14. RESTORIL [Concomitant]
     Indication: INSOMNIA
     Dates: start: 20070105
  15. VISTARIL [Concomitant]
     Dates: start: 20070105

REACTIONS (3)
  - DIABETES MELLITUS [None]
  - DIABETIC COMA [None]
  - TYPE 2 DIABETES MELLITUS [None]
